FAERS Safety Report 5090817-5 (Version None)
Quarter: 2006Q3

REPORT INFORMATION
  Report Type: 
  Country: None (occurrence: None)
  Receive Date: 20060823
  Receipt Date: 20060809
  Transmission Date: 20061208
  Serious: Yes (Life-Threatening, Hospitalization, Other)
  Sender: FDA-Public Use
  Company Number: FRWYE622509AUG06

PATIENT
  Age: 6 Year
  Sex: Female

DRUGS (1)
  1. ADVIL [Suspect]
     Indication: PYREXIA
     Dosage: 200 MG 3X PER 1 DAY ORAL
     Route: 048
     Dates: start: 20060702, end: 20060705

REACTIONS (4)
  - EYE DISORDER [None]
  - ODYNOPHAGIA [None]
  - PHARYNGOLARYNGEAL PAIN [None]
  - TOXIC EPIDERMAL NECROLYSIS [None]
